FAERS Safety Report 15866295 (Version 2)
Quarter: 2019Q1

REPORT INFORMATION
  Report Type: Spontaneous
  Country: US (occurrence: US)
  Receive Date: 20190125
  Receipt Date: 20190128
  Transmission Date: 20190417
  Serious: Yes (Other)
  Sender: FDA-Public Use
  Company Number: US-PFIZER INC-2019032387

PATIENT
  Sex: Female

DRUGS (1)
  1. LYRICA [Suspect]
     Active Substance: PREGABALIN
     Dosage: 600 MG, UNK

REACTIONS (4)
  - Intentional product misuse [Unknown]
  - Drug dependence [Unknown]
  - Hallucination [Unknown]
  - Pain [Unknown]
